FAERS Safety Report 14159397 (Version 1)
Quarter: 2017Q4

REPORT INFORMATION
  Report Type: Spontaneous
  Country: US (occurrence: US)
  Receive Date: 20171106
  Receipt Date: 20171106
  Transmission Date: 20180321
  Serious: No
  Sender: FDA-Public Use
  Company Number: US-AUROBINDO-AUR-APU-2017-00162

PATIENT
  Age: 86 Year
  Sex: Female
  Weight: 50 kg

DRUGS (3)
  1. METOPROLOL TARTRATE FILM COATED TABLETS USP 50 MG [Suspect]
     Active Substance: METOPROLOL TARTRATE
     Indication: BLOOD PRESSURE MEASUREMENT
     Dosage: 1 DF, TWO TIMES A DAY
     Route: 065
     Dates: start: 20161215, end: 20161220
  2. METOPROLOL TARTRATE FILM COATED TABLETS USP 50 MG [Suspect]
     Active Substance: METOPROLOL TARTRATE
     Indication: ARRHYTHMIA
  3. FLONASE                            /00908302/ [Concomitant]
     Active Substance: MOMETASONE FUROATE
     Indication: SINUS DISORDER
     Route: 065

REACTIONS (5)
  - Abdominal pain upper [Recovered/Resolved]
  - Drug ineffective [Unknown]
  - Palpitations [Unknown]
  - Product quality issue [Unknown]
  - Condition aggravated [Recovered/Resolved]

NARRATIVE: CASE EVENT DATE: 20161216
